FAERS Safety Report 13831305 (Version 1)
Quarter: 2017Q3

REPORT INFORMATION
  Report Type: Spontaneous
  Country: US (occurrence: US)
  Receive Date: 20170803
  Receipt Date: 20170803
  Transmission Date: 20171127
  Serious: No
  Sender: FDA-Public Use
  Company Number: US-SHIRE-US201715222

PATIENT
  Sex: Male

DRUGS (1)
  1. ELAPRASE [Suspect]
     Active Substance: IDURSULFASE
     Indication: MUCOPOLYSACCHARIDOSIS II
     Dosage: 42 MG, 1X/WEEK
     Route: 041
     Dates: start: 20140314

REACTIONS (3)
  - Poor venous access [Unknown]
  - Drug dose omission [Unknown]
  - Malaise [Unknown]
